FAERS Safety Report 9226519 (Version 8)
Quarter: 2014Q1

REPORT INFORMATION
  Report Type: Spontaneous
  Country: US (occurrence: US)
  Receive Date: 20130412
  Receipt Date: 20140318
  Transmission Date: 20141002
  Serious: Yes (Disabling, Other)
  Sender: FDA-Public Use
  Company Number: US-009507513-1304USA004981

PATIENT
  Age: 61 Year
  Sex: Female

DRUGS (10)
  1. PEGINTRON [Suspect]
     Indication: HEPATITIS C
     Dosage: DOSE 0.4 ML, ONCE A WEEK
     Route: 058
     Dates: start: 20130409, end: 20140304
  2. REBETOL [Suspect]
     Indication: HEPATITIS C
     Dosage: 2AM, 3PM; TWICE A DAY
     Route: 048
     Dates: start: 20130409
  3. VICTRELIS [Suspect]
     Indication: HEPATITIS C
     Dosage: UNK
     Route: 048
     Dates: start: 20130507, end: 20130508
  4. GLUCOTROL XL [Concomitant]
     Indication: TYPE 2 DIABETES MELLITUS
     Dosage: 5 MG, QD
     Route: 048
  5. NEXIUM [Concomitant]
     Dosage: 40 MG, QD
     Route: 048
  6. SYNTHROID [Concomitant]
     Dosage: 50 MG, QD
     Route: 048
  7. CYANOCOBALAMIN [Concomitant]
     Dosage: 1 (UNITS NOT PROVIDED), QD
     Route: 048
     Dates: start: 201306
  8. MICARDIS [Concomitant]
     Dosage: 80 MG, QD
     Route: 048
  9. NORVASC [Concomitant]
     Dosage: 10 MG, QD
     Route: 048
  10. PAXIL [Concomitant]
     Indication: DEPRESSION
     Dosage: 37.5 MG, QD
     Route: 048

REACTIONS (35)
  - Muscle tightness [Unknown]
  - Diabetes mellitus [Unknown]
  - Activities of daily living impaired [Unknown]
  - Somnolence [Unknown]
  - Feeling abnormal [Unknown]
  - Anxiety [Unknown]
  - Stress [Unknown]
  - Energy increased [Recovering/Resolving]
  - Musculoskeletal stiffness [Unknown]
  - Dehydration [Unknown]
  - Influenza like illness [Recovering/Resolving]
  - Dysgeusia [Unknown]
  - Anxiety [Unknown]
  - Muscle tightness [Unknown]
  - Abdominal pain [Unknown]
  - Insomnia [Unknown]
  - Rash generalised [Unknown]
  - Dermatitis contact [Unknown]
  - Pruritus [Unknown]
  - Asthenia [Unknown]
  - Rash [Recovered/Resolved]
  - Asthenia [Unknown]
  - Chills [Unknown]
  - Dizziness [Unknown]
  - Fatigue [Recovering/Resolving]
  - Nausea [Unknown]
  - Diarrhoea [Unknown]
  - Vomiting [Unknown]
  - Dizziness [Unknown]
  - Nausea [Unknown]
  - Depression [Unknown]
  - Crying [Unknown]
  - Fatigue [Unknown]
  - Nausea [Unknown]
  - Fatigue [Unknown]
